FAERS Safety Report 25893984 (Version 1)
Quarter: 2025Q4

REPORT INFORMATION
  Report Type: Spontaneous
  Country: EU (occurrence: EU)
  Receive Date: 20251008
  Receipt Date: 20251008
  Transmission Date: 20260118
  Serious: Yes (Death, Hospitalization)
  Sender: ACCORD
  Company Number: None

PATIENT
  Age: 60 Year
  Sex: Male

DRUGS (10)
  1. CARBOPLATIN [Suspect]
     Active Substance: CARBOPLATIN
     Indication: Lung carcinoma cell type unspecified stage IV
     Dates: start: 20250321, end: 20250321
  2. PEMETREXED [Suspect]
     Active Substance: PEMETREXED
     Indication: Lung carcinoma cell type unspecified stage IV
     Dates: start: 20250321, end: 20250321
  3. PEMBROLIZUMAB [Suspect]
     Active Substance: PEMBROLIZUMAB
     Indication: Lung carcinoma cell type unspecified stage IV
     Dates: start: 20250321, end: 20250321
  4. XIGDUO XR [Concomitant]
     Active Substance: DAPAGLIFLOZIN PROPANEDIOL\METFORMIN HYDROCHLORIDE
     Indication: Type 2 diabetes mellitus
     Dosage: STRENGTH: 5 MG/1000 MG, 1 TABLET EVERY 12 HOURS, 56 TABLETS
     Dates: start: 20241010
  5. CYANOCOBALAMIN [Concomitant]
     Active Substance: CYANOCOBALAMIN
     Indication: Chemotherapy side effect prophylaxis
     Dosage: 1000 MICROGRAMS, 1 INJECTABLE EVERY 3 MONTHS AMPOULES OF 2 ML.
     Dates: start: 20250317
  6. ZOLICO [Concomitant]
     Indication: Chemotherapy side effect prophylaxis
     Dosage: 400 MICROGRAM TABLETS, 28 TABLETS 1 TABLET EVERY 24 HOURS
     Dates: start: 20250317
  7. DEXAMETHASONE [Concomitant]
     Active Substance: DEXAMETHASONE
     Indication: Chemotherapy side effect prophylaxis
     Dosage: 1 TABLET EVERY 12 HOURS
     Dates: start: 20250317
  8. PALEXIA [Concomitant]
     Active Substance: TAPENTADOL HYDROCHLORIDE
     Indication: Cancer pain
     Dosage: 50 MG PROLONGED-RELEASE TABLETS, 60 TABLETS, 1 TABLET EVERY 12 HOURS
     Dates: start: 20250225
  9. PALEXIA [Concomitant]
     Active Substance: TAPENTADOL HYDROCHLORIDE
     Indication: Cancer pain
     Dosage: 1 TABLET EVERY 12 HOURS, STRENGTH: 25 MG, 60 TABLETS
     Dates: start: 20250317
  10. OMEPRAZOLE [Concomitant]
     Active Substance: OMEPRAZOLE
     Dosage: STRENGTH: 40 MG GASTRO-RESISTANT HARD CAPSULES, 56 CAPSULES, 1 TABLET EVERY 12 HOURS
     Dates: start: 20250317

REACTIONS (3)
  - Pancytopenia [Fatal]
  - Pharyngeal inflammation [Fatal]
  - Rectal haemorrhage [Fatal]

NARRATIVE: CASE EVENT DATE: 20250402
